FAERS Safety Report 23529708 (Version 4)
Quarter: 2024Q3

REPORT INFORMATION
  Report Type: Spontaneous
  Country: US (occurrence: US)
  Receive Date: 20240216
  Receipt Date: 20240924
  Transmission Date: 20241016
  Serious: Yes (Other)
  Sender: SANOFI AVENTIS
  Company Number: US-SA-SAC20240208000550

PATIENT
  Age: 52 Year
  Sex: Female

DRUGS (2)
  1. KEVZARA [Suspect]
     Active Substance: SARILUMAB
     Indication: Rheumatoid arthritis
     Dosage: 200 MG, QOW
     Route: 058
     Dates: start: 202211
  2. KEVZARA [Suspect]
     Active Substance: SARILUMAB
     Indication: Osteoporosis

REACTIONS (4)
  - Rheumatoid arthritis [Unknown]
  - Memory impairment [Unknown]
  - Nasopharyngitis [Unknown]
  - Product use in unapproved indication [Unknown]
